FAERS Safety Report 15165761 (Version 2)
Quarter: 2020Q3

REPORT INFORMATION
  Report Type: Report from Study
  Country: ES (occurrence: ES)
  Receive Date: 20180719
  Receipt Date: 20180727
  Transmission Date: 20201104
  Serious: Yes (Hospitalization)
  Sender: FDA-Public Use
  Company Number: ES-JNJFOC-20180704729

PATIENT
  Age: 69 Year
  Sex: Male
  Weight: 76.5 kg

DRUGS (3)
  1. TRABECTEDIN [Suspect]
     Active Substance: TRABECTEDIN
     Indication: SOFT TISSUE SARCOMA
     Dosage: CYCLE 6
     Route: 042
     Dates: start: 20180628
  2. TRABECTEDIN [Suspect]
     Active Substance: TRABECTEDIN
     Route: 042
  3. TRABECTEDIN [Suspect]
     Active Substance: TRABECTEDIN
     Route: 042

REACTIONS (1)
  - Pyrexia [Recovered/Resolved]

NARRATIVE: CASE EVENT DATE: 20180701
